FAERS Safety Report 9099136 (Version 1)
Quarter: 2013Q1

REPORT INFORMATION
  Report Type: Spontaneous
  Country: US (occurrence: US)
  Receive Date: 20130214
  Receipt Date: 20130214
  Transmission Date: 20140127
  Serious: No
  Sender: FDA-Public Use
  Company Number: US-COVIDIEN/TYCO HEALTHCARE/MALLINCKRODT-T201300344

PATIENT
  Age: 86 Year
  Sex: Female
  Weight: 68.03 kg

DRUGS (2)
  1. FENTANYL TRANSDERMAL SYSTEM [Suspect]
     Indication: CANCER PAIN
     Dosage: 25 MCG/HR Q 3 DAYS
     Route: 062
     Dates: start: 201301, end: 20130121
  2. TRAMADOL [Concomitant]
     Indication: PAIN
     Dosage: 25 MG, QD

REACTIONS (5)
  - Muscular weakness [Recovered/Resolved]
  - Asthenia [Recovered/Resolved]
  - Nausea [Recovered/Resolved]
  - Vomiting [Recovered/Resolved]
  - Drug ineffective [Unknown]
